FAERS Safety Report 8457359-8 (Version None)
Quarter: 2012Q2

REPORT INFORMATION
  Report Type: 
  Country: None (occurrence: None)
  Receive Date: 20120621
  Receipt Date: 20120607
  Transmission Date: 20120825
  Serious: Yes (Other)
  Sender: FDA-Public Use
  Company Number: CA-ARROW GEN-2012-10299

PATIENT
  Age: 10 Year
  Sex: Female

DRUGS (5)
  1. VALPROATE SODIUM [Suspect]
     Dosage: 125 MG, QHS
     Route: 065
  2. VALPROATE SODIUM [Suspect]
     Indication: CONVULSION
     Dosage: 125 MG, QAM
     Route: 065
  3. TOPIRAMATE [Suspect]
     Dosage: 25 MG, QHS
     Route: 065
  4. TOPIRAMATE [Suspect]
     Indication: CONVULSION
     Dosage: 25 MG, QAM
     Route: 065
  5. TOPIRAMATE [Suspect]
     Dosage: 12.5 MG, QPM
     Route: 065

REACTIONS (1)
  - FANCONI SYNDROME [None]
